FAERS Safety Report 11434214 (Version 1)
Quarter: 2015Q3

REPORT INFORMATION
  Report Type: Report from Study
  Country: US (occurrence: US)
  Receive Date: 20150831
  Receipt Date: 20150831
  Transmission Date: 20151125
  Serious: Yes (Hospitalization)
  Sender: FDA-Public Use
  Company Number: US-EISAI MEDICAL RESEARCH-EC-2015-009851

PATIENT
  Age: 69 Year
  Sex: Female
  Weight: 82.92 kg

DRUGS (21)
  1. PROCHLORPERAZINE. [Concomitant]
     Active Substance: PROCHLORPERAZINE
  2. ERIBULIN [Suspect]
     Active Substance: ERIBULIN
     Indication: BREAST CANCER METASTATIC
     Route: 041
     Dates: start: 20150714, end: 20150813
  3. CORICIDIN [Concomitant]
     Active Substance: ACETAMINOPHEN\CHLORPHENIRAMINE MALEATE
  4. DEXAMETHASONE. [Concomitant]
     Active Substance: DEXAMETHASONE
  5. HYDROCHLOROTHIAZIDE. [Concomitant]
     Active Substance: HYDROCHLOROTHIAZIDE
  6. CELEXA [Concomitant]
     Active Substance: CITALOPRAM HYDROBROMIDE
  7. HYCET [Concomitant]
     Active Substance: ACETAMINOPHEN\HYDROCODONE BITARTRATE
  8. KEFLEX [Concomitant]
     Active Substance: CEPHALEXIN
  9. ALLEGRA [Concomitant]
     Active Substance: FEXOFENADINE HYDROCHLORIDE
  10. FENTANYL. [Concomitant]
     Active Substance: FENTANYL
  11. LISINOPRIL. [Concomitant]
     Active Substance: LISINOPRIL
  12. ONDANSETRON [Concomitant]
     Active Substance: ONDANSETRON
  13. POTASSIUM CHLORIDE. [Concomitant]
     Active Substance: POTASSIUM CHLORIDE
  14. PEPCID AC [Concomitant]
     Active Substance: FAMOTIDINE
  15. TYLENOL [Concomitant]
     Active Substance: ACETAMINOPHEN
  16. MIRACLE MOUTHWASH [Concomitant]
  17. ATIVAN [Concomitant]
     Active Substance: LORAZEPAM
  18. LACTULOSE. [Concomitant]
     Active Substance: LACTULOSE
  19. PROMETHAZINE [Concomitant]
     Active Substance: PROMETHAZINE\PROMETHAZINE HYDROCHLORIDE
  20. TRAMADOL. [Concomitant]
     Active Substance: TRAMADOL
  21. COLD EASE [Concomitant]

REACTIONS (1)
  - Hypovolaemia [Not Recovered/Not Resolved]

NARRATIVE: CASE EVENT DATE: 20150824
